FAERS Safety Report 5670887-3 (Version None)
Quarter: 2008Q1

REPORT INFORMATION
  Report Type: 
  Country: None (occurrence: None)
  Receive Date: 20080318
  Receipt Date: 20080317
  Transmission Date: 20080703
  Serious: Yes (Other)
  Sender: FDA-Public Use
  Company Number: A0713352A

PATIENT
  Age: 64 Year
  Sex: Male
  Weight: 36.8 kg

DRUGS (12)
  1. LAPATINIB [Suspect]
     Dosage: 1500MG PER DAY
     Route: 048
     Dates: start: 20071213, end: 20080130
  2. OXYCODONE HCL [Concomitant]
     Dosage: 10ML SIX TIMES PER DAY
     Route: 048
     Dates: start: 20071206
  3. SUCRALFATE [Concomitant]
     Route: 048
  4. METOCLOPRAMIDE [Concomitant]
  5. CHERATUSSIN AC [Concomitant]
  6. ZOLPIDEM [Concomitant]
  7. MOTRIN [Concomitant]
  8. NAPHAZOLINE HCL [Concomitant]
  9. RADIATION [Concomitant]
  10. TYLENOL (CAPLET) [Concomitant]
  11. ONDANSETRON [Concomitant]
     Dosage: 8MG SINGLE DOSE
     Dates: start: 20071207
  12. SENNA [Concomitant]
     Dosage: 8.5MG PER DAY
     Dates: start: 20071205

REACTIONS (3)
  - ALANINE AMINOTRANSFERASE INCREASED [None]
  - ASPARTATE AMINOTRANSFERASE INCREASED [None]
  - BLOOD ALKALINE PHOSPHATASE INCREASED [None]
